FAERS Safety Report 7546677-3 (Version None)
Quarter: 2011Q2

REPORT INFORMATION
  Report Type: 
  Country: None (occurrence: None)
  Receive Date: 20110607
  Receipt Date: 20110523
  Transmission Date: 20111010
  Serious: Yes (Hospitalization)
  Sender: FDA-Public Use
  Company Number: DSJ-2011-04536

PATIENT
  Age: 59 Year
  Sex: Male

DRUGS (4)
  1. BENICAR HCT [Suspect]
     Indication: HYPERTENSION
     Dosage: 20/12.5 MG (1 IN 1 D), PER ORAL; 40/12.5 MG (1 IN 1 D) PER ORAL
     Route: 048
     Dates: start: 20101101, end: 20110501
  2. BENICAR HCT [Suspect]
     Indication: HYPERTENSION
     Dosage: 20/12.5 MG (1 IN 1 D), PER ORAL; 40/12.5 MG (1 IN 1 D) PER ORAL
     Route: 048
     Dates: start: 20100901, end: 20101101
  3. SIMVASTATIN [Suspect]
     Indication: HYPERCHOLESTEROLAEMIA
     Dosage: 40 MG (40 MG, 1 IN 1 D), PER ORAL
     Route: 048
     Dates: start: 20100901
  4. SAXAGLIPTIN (SAXAGLIPTIN) (SAXAGLIPTIN) [Suspect]
     Indication: DIABETES MELLITUS
     Dosage: 5 MG (5 MG, 1 IN 1 D), PER ORAL;
     Route: 048
     Dates: start: 20100901

REACTIONS (2)
  - SURGERY [None]
  - DRUG INEFFECTIVE [None]
